FAERS Safety Report 9449784 (Version 1)
Quarter: 2013Q3

REPORT INFORMATION
  Report Type: Spontaneous
  Country: FR (occurrence: FR)
  Receive Date: 20130809
  Receipt Date: 20130809
  Transmission Date: 20140515
  Serious: Yes (Hospitalization)
  Sender: FDA-Public Use
  Company Number: FR-ASTRAZENECA-2013SE61865

PATIENT
  Age: 22552 Day
  Sex: Male

DRUGS (13)
  1. INEXIUM [Suspect]
     Indication: GASTROOESOPHAGEAL REFLUX DISEASE
     Route: 048
  2. DUROGESIC [Suspect]
     Indication: PAIN
     Route: 062
     Dates: end: 20130613
  3. DUROGESIC [Suspect]
     Indication: PAIN
     Route: 062
     Dates: start: 20130613, end: 20130613
  4. RIVOTRIL [Suspect]
     Indication: EPILEPSY
     Dosage: 2.5 MG/ML, 4 DROPS AT MORNING AND 6 DROPS AT NIGHT, DAILY
     Route: 048
  5. ZELITREX [Suspect]
     Indication: HERPES SIMPLEX
     Route: 048
  6. EUPRESSYL [Suspect]
     Indication: HYPERTENSION
     Route: 048
  7. LOXEN [Suspect]
     Indication: HYPERTENSION
     Dosage: 50MG SR TWICE DAILY
     Route: 048
  8. KARDEGIC [Suspect]
     Route: 048
  9. XATRAL [Suspect]
     Dosage: 10MG SR, EVERY DAY
     Route: 048
  10. TIORFAN [Suspect]
     Indication: DIARRHOEA
     Route: 048
  11. CARDENSIEL [Suspect]
     Indication: CARDIAC FAILURE
     Route: 048
  12. CYMBALTA [Suspect]
     Route: 048
  13. WELLVONE [Concomitant]
     Dosage: 2 SPOONS EVERY DAY
     Route: 048

REACTIONS (5)
  - Intentional overdose [Unknown]
  - Confusional state [Recovered/Resolved with Sequelae]
  - Loss of consciousness [Recovered/Resolved with Sequelae]
  - Grand mal convulsion [Recovered/Resolved]
  - Malaise [Recovered/Resolved]
